FAERS Safety Report 4834445-2 (Version None)
Quarter: 2005Q4

REPORT INFORMATION
  Report Type: 
  Country: None (occurrence: None)
  Receive Date: 20051122
  Receipt Date: 20041103
  Transmission Date: 20060501
  Serious: No
  Sender: FDA-Public Use
  Company Number: US-BRISTOL-MYERS SQUIBB COMPANY-12754792

PATIENT
  Age: 63 Year
  Sex: Male
  Weight: 76 kg

DRUGS (10)
  1. PRAVACHOL [Suspect]
     Indication: BLOOD CHOLESTEROL INCREASED
     Route: 048
     Dates: start: 20041019, end: 20041101
  2. COREG [Concomitant]
  3. ASPIRIN [Concomitant]
  4. PLAVIX [Concomitant]
  5. GLUCOPHAGE [Concomitant]
  6. ALTACE [Concomitant]
  7. DIGOXIN [Concomitant]
  8. ACTOS [Concomitant]
  9. TRICOR [Concomitant]
  10. INDOMETHACIN [Concomitant]
     Indication: GOUT
     Dates: start: 20041022, end: 20041027

REACTIONS (3)
  - DIZZINESS [None]
  - HEADACHE [None]
  - MYALGIA [None]
